FAERS Safety Report 9192616 (Version 1)
Quarter: 2013Q1

REPORT INFORMATION
  Report Type: Spontaneous
  Country: US (occurrence: None)
  Receive Date: 20130325
  Receipt Date: 20130325
  Transmission Date: 20140127
  Serious: No
  Sender: FDA-Public Use
  Company Number: None

PATIENT
  Age: 73 Year
  Sex: Male

DRUGS (1)
  1. ZYTIGA [Suspect]
     Dosage: 4 TABLETS DAILY  DAILY  PO
     Route: 048
     Dates: start: 201209, end: 201302

REACTIONS (1)
  - Neoplasm progression [None]
